FAERS Safety Report 15494101 (Version 1)
Quarter: 2018Q4

REPORT INFORMATION
  Report Type: Spontaneous
  Country: US (occurrence: US)
  Receive Date: 20181012
  Receipt Date: 20181012
  Transmission Date: 20190205
  Serious: Yes (Other)
  Sender: FDA-Public Use
  Company Number: US-PFIZER INC-2018405580

PATIENT
  Age: 49 Year
  Sex: Female
  Weight: 53.52 kg

DRUGS (4)
  1. LYRICA [Suspect]
     Active Substance: PREGABALIN
     Indication: PAIN
     Dosage: 150 MG, 2X/DAY
     Route: 048
  2. LYRICA [Suspect]
     Active Substance: PREGABALIN
     Dosage: 150 MG, 2X/DAY
  3. LYRICA [Suspect]
     Active Substance: PREGABALIN
     Dosage: 200 MG, 2X/DAY
     Route: 048
     Dates: start: 20180913
  4. LYRICA [Suspect]
     Active Substance: PREGABALIN
     Indication: FIBROMYALGIA
     Dosage: 75 MG, 2X/DAY
     Route: 048
     Dates: start: 201711, end: 201801

REACTIONS (10)
  - Body height decreased [Unknown]
  - Condition aggravated [Unknown]
  - Weight increased [Unknown]
  - Hypertension [Unknown]
  - Eye disorder [Unknown]
  - Hyperphagia [Unknown]
  - Abdominal distension [Unknown]
  - Intentional self-injury [Unknown]
  - Drug withdrawal syndrome [Recovered/Resolved]
  - Feeling abnormal [Unknown]

NARRATIVE: CASE EVENT DATE: 201807
